FAERS Safety Report 5040692-X (Version None)
Quarter: 2006Q2

REPORT INFORMATION
  Report Type: 
  Country: None (occurrence: None)
  Receive Date: 20060629
  Receipt Date: 20060629
  Transmission Date: 20061013
  Serious: Yes (Life-Threatening, Other)
  Sender: FDA-Public Use
  Company Number: None

PATIENT
  Age: 65 Year
  Sex: Male

DRUGS (2)
  1. VYTORIN [Suspect]
     Indication: HYPERLIPIDAEMIA
     Dosage: 5/40MG HS PO
     Route: 048
     Dates: start: 20051205, end: 20060404
  2. FENOFIBRATE [Suspect]
     Dates: start: 20051205, end: 20060404

REACTIONS (1)
  - HEPATIC ENZYME INCREASED [None]
